FAERS Safety Report 24433200 (Version 2)
Quarter: 2024Q4

REPORT INFORMATION
  Report Type: Report from Study
  Country: US (occurrence: US)
  Receive Date: 20241014
  Receipt Date: 20241231
  Transmission Date: 20250115
  Serious: Yes (Hospitalization)
  Sender: NOVARTIS
  Company Number: US-002147023-NVSC2024US199431

PATIENT
  Age: 44 Year
  Sex: Female

DRUGS (1)
  1. COSENTYX [Suspect]
     Active Substance: SECUKINUMAB
     Indication: Hidradenitis
     Dosage: 300 MG, Q4W
     Route: 058
     Dates: start: 20231115, end: 20240606

REACTIONS (8)
  - Abscess [Recovered/Resolved]
  - Adverse drug reaction [Recovered/Resolved]
  - Pain [Unknown]
  - Nausea [Unknown]
  - Skin lesion [Unknown]
  - Hidradenitis [Unknown]
  - Condition aggravated [Unknown]
  - Product supply issue [Unknown]

NARRATIVE: CASE EVENT DATE: 20231208
